FAERS Safety Report 19592476 (Version 1)
Quarter: 2021Q3

REPORT INFORMATION
  Report Type: Spontaneous
  Country: US (occurrence: US)
  Receive Date: 20210721
  Receipt Date: 20210721
  Transmission Date: 20211014
  Serious: Yes (Other)
  Sender: FDA-Public Use
  Company Number: None

PATIENT
  Age: 66 Year
  Sex: Female
  Weight: 61.65 kg

DRUGS (2)
  1. OLMESARTAN [Concomitant]
     Active Substance: OLMESARTAN
  2. MODAFANIL 200 MG [Suspect]
     Active Substance: MODAFINIL
     Indication: SOMNOLENCE
     Dosage: ?          QUANTITY:1 TABLET(S);?
     Route: 048
     Dates: start: 20210601

REACTIONS (3)
  - Impaired driving ability [None]
  - Product substitution issue [None]
  - Somnolence [None]

NARRATIVE: CASE EVENT DATE: 20210721
